FAERS Safety Report 17248797 (Version 1)
Quarter: 2020Q1

REPORT INFORMATION
  Report Type: Spontaneous
  Country: US (occurrence: US)
  Receive Date: 20200106
  Receipt Date: 20200106
  Transmission Date: 20200409
  Serious: Yes (Other)
  Sender: FDA-Public Use
  Company Number: None

PATIENT
  Age: 72 Year
  Sex: Male
  Weight: 53.52 kg

DRUGS (73)
  1. PULMICORT TURBUHALER [Concomitant]
     Active Substance: BUDESONIDE
     Dates: start: 20191121
  2. TYLENOL EXTRA STRENGTH (PARACETAMOL) [Concomitant]
     Dates: start: 20191121, end: 20191121
  3. HUMAN ALBUMIN (HUMAN ALBUMIN) [Concomitant]
     Dates: start: 20191213, end: 20191213
  4. DIURIL [CHLOROTHIAZIDE SODIUM] (CHLOROTHIAZIDE SODIUM) [Concomitant]
     Dates: start: 20191123, end: 20191123
  5. XYLOCAIN [LIDOCAINE] (LIDOCAINE) [Concomitant]
  6. HYDROCODONE (HYDROCODONE) [Concomitant]
     Active Substance: HYDROCODONE
  7. LIPITOR [Concomitant]
     Active Substance: ATORVASTATIN CALCIUM
  8. CEFTOLOZANE SULFATE;TAZOBACTAM SODIUM (CEFTOLOZANE SULFATE;TAZOBACTAM [Concomitant]
  9. MERREM (MEROPENEM TRIHYDRATE) [Concomitant]
  10. LACTATE RINGER (CALCIUM CHLORIDE, POTASSIUM CHLORIDE, SODIUM LACTATE) [Concomitant]
  11. ASPIRIN 81 (ACETYLSALICYLIC ACID) [Concomitant]
  12. HUMULIN R (INSULIN HUMAN) [Concomitant]
  13. POLYMYXIN B. [Suspect]
     Active Substance: POLYMYXIN B
     Indication: PSEUDOMONAS INFECTION
     Dosage: ?          OTHER DOSE:1600000 UNITS;?
     Dates: start: 20191203, end: 20191203
  14. DIAMOX CAMPUS (ACETAZOLAMIDE SODIUM) [Concomitant]
     Dates: start: 20191119, end: 20191119
  15. NIMBEX [NIMESULIDE] (NIMESULIDE) [Concomitant]
     Dates: start: 20191123, end: 20191123
  16. MIDAZOLAM HCL (MIDAZOLAM HCL) [Concomitant]
  17. ZOFRAN [ONDANSETRON] (ONDANSETRON) [Concomitant]
  18. CARDIZEM [DILTIAZEM HYDROCHLORIDE] (DILTIAZEM HYDROCHLORIDE) [Concomitant]
  19. PEPCID AC (FAMOTIDINE) [Concomitant]
  20. DIFLUCAN [Concomitant]
     Active Substance: FLUCONAZOLE
  21. GABAPENTIN (GABAPENTIN) [Concomitant]
     Active Substance: GABAPENTIN
  22. NORMAL SALINE (NORMAL SALINE) [Concomitant]
  23. S-649266 (CEFIDEROCOL) INTRAVENOUS INFUSION [Suspect]
     Active Substance: CEFIDEROCOL
     Indication: PSEUDOMONAS INFECTION
     Dosage: ?          OTHER FREQUENCY:8 HOUR;?
     Route: 042
     Dates: start: 20191203, end: 20191216
  24. ACTIVASE [Concomitant]
     Active Substance: ALTEPLASE
     Dates: start: 20191118, end: 20191118
  25. DILAUDID [Concomitant]
     Active Substance: HYDROMORPHONE HYDROCHLORIDE
  26. SOLU-MEDROL [Concomitant]
     Active Substance: METHYLPREDNISOLONE SODIUM SUCCINATE
  27. K-DUR [Concomitant]
     Active Substance: POTASSIUM CHLORIDE
  28. K-LOR (POTASSIUM CHLORIDE) [Concomitant]
  29. DEFINITY [Concomitant]
     Active Substance: PERFLUTREN
  30. LOVENOX [ENOXAPARIN SODIUM] (ENOXAPARIN SODIUM) [Concomitant]
     Dates: start: 20191208, end: 20191208
  31. MAGNESIUM SULFATE (MAGNESIUM SULFATE) [Concomitant]
  32. POTASSIUM ACETATE (POTASSIUM ACETATE) [Concomitant]
  33. DEXTROSE (DEXTROSE) [Concomitant]
  34. HUMALOG [Concomitant]
     Active Substance: INSULIN LISPRO
  35. OXYIR (OXYCODONE HYDROCHLORIDE) [Concomitant]
  36. ASPIRIN (E.C.) (ACETYLSALICYLIC ACID) [Concomitant]
  37. LOVENOX HP (ENOXAPARIN SODIUM) [Concomitant]
  38. FENTANYL (FENTANYL) [Concomitant]
     Active Substance: FENTANYL
  39. CARAFATE (SUCRALFATE) [Concomitant]
  40. GLYCERIN ADULT (GLYCEROL) [Concomitant]
  41. ISOVUE [Concomitant]
     Active Substance: IOPAMIDOL
  42. POTASSIUM CHLORIDE (POTASSIUM CHLORIDE) [Concomitant]
     Active Substance: POTASSIUM CHLORIDE
  43. PHOS-NAK (POTASSIUM PHOSPHATE DIBASIC, POTASSIUM PHOSPHATE MONOBASIC, [Concomitant]
  44. PHENYLEPHRINE (PHENYLEPHRINE) [Concomitant]
  45. AFRIN ALL NIGHT NO DRIP (OXYMETAZOLINE HYDROCHLORIDE) [Concomitant]
  46. PROPOFOL (PROPOFOL) [Concomitant]
     Active Substance: PROPOFOL
  47. COLISTIN (COLISTIN) [Concomitant]
  48. FLORINEF ACETATE (FLUDROCORTISONE ACETATE) [Concomitant]
  49. PROTONIX [PANTOPRAZOLE SODIUM SESQUIHYDRATE] (PANTOPRAZOLE SODIUM SESQ [Concomitant]
  50. TOBRAMYCIN SULPHATE (TOBRAMYCIN SULPHATE) [Concomitant]
  51. BACITRACIN (BACITRACIN) [Concomitant]
     Active Substance: BACITRACIN
     Dates: start: 20191209, end: 20191209
  52. ETOMIDATE (ETOMIDATE) [Concomitant]
     Dates: start: 20191120, end: 20191120
  53. QUELICIN (SUXAMETHONIUM CHLORIDE) [Concomitant]
  54. SOLUCORTEF (HYDROCORTISONE SODIUM SUCCINATE) [Concomitant]
  55. PLASMALYTE (GLUCONATE SODIUM, MAGNESIUM CHLORIDE HEXAHYDRATE, POTASSIU [Concomitant]
     Dates: start: 20191212, end: 20191212
  56. LASIX [FUROSEMIDE] (FUROSEMIDE) [Concomitant]
  57. HEPARIN 1000 (HEPARIN SODIUM) [Concomitant]
  58. KETALAR (KETAMINE HYDROCHLORIDE) [Concomitant]
  59. GLUCAGON (GLUCAGON) [Concomitant]
  60. DUONEB (IPRATROPIUM BROMIDE, SALBUTAMOL SULFATE) [Concomitant]
  61. HEPARIN SODIUM (HEPARIN SODIUM) [Concomitant]
     Active Substance: HEPARIN SODIUM
  62. SODIUM CHLORIDE (SODIUM CHLORIDE) [Concomitant]
     Active Substance: SODIUM CHLORIDE
  63. BROVANA (ARFORMOTEROL TARTRATE) [Concomitant]
     Dates: start: 20191116
  64. SUBLIMAZE [FENTANYL CITRATE] (FENTANYL CITRATE) [Concomitant]
  65. MOTRIN [IBUPROFEN] (IBUPROFEN) [Concomitant]
  66. K-PHOS NEUTRAL (POTASSIUM PHOSPHATE MONOBASIC, SODIUM PHOSPHATE DIBASI [Concomitant]
  67. CORDARONE (AMIODARONE HYDROCHLORIDE) [Concomitant]
  68. PRECEDEX (DEXMEDETOMIDINE HYDROCHLORIDE) [Concomitant]
  69. BENADRYL [DIPHENHYDRAMINE HYDROCHLORIDE] (DIPHENHYDRAMINE HYDROCHLORID [Concomitant]
  70. HUMULIN N (INSULIN HUMAN INJECTION, ISOPHANE) [Concomitant]
  71. REMERON [Concomitant]
     Active Substance: MIRTAZAPINE
  72. LEVOPHED BITARTRATE (NOREPINEPHRINE BITARTRATE) [Concomitant]
  73. SENOKOT (SENNOSIDEA+B) [Concomitant]

REACTIONS (1)
  - Acute kidney injury [None]

NARRATIVE: CASE EVENT DATE: 20191214
